FAERS Safety Report 4890770-0 (Version None)
Quarter: 2006Q1

REPORT INFORMATION
  Report Type: 
  Country: None (occurrence: None)
  Receive Date: 20060123
  Receipt Date: 20060109
  Transmission Date: 20060701
  Serious: Yes (Hospitalization)
  Sender: FDA-Public Use
  Company Number: 219181

PATIENT
  Age: 34 Year
  Sex: Female
  Weight: 91.6 kg

DRUGS (6)
  1. AVASTIN [Suspect]
     Indication: NON-SMALL CELL LUNG CANCER
     Dosage: 1408 MG
     Dates: start: 20050906
  2. CARBOPLATIN [Suspect]
     Indication: NON-SMALL CELL LUNG CANCER
     Dates: start: 20050906
  3. ALIMTA [Suspect]
     Indication: NON-SMALL CELL LUNG CANCER
     Dates: start: 20050906
  4. FOLIC ACID [Concomitant]
  5. ASPIRIN [Concomitant]
  6. HYDROCODONE (HYDROCODONE BITARTRATE) [Concomitant]

REACTIONS (8)
  - ADRENAL NEOPLASM [None]
  - BREAST MASS [None]
  - HEART RATE INCREASED [None]
  - LOBAR PNEUMONIA [None]
  - NEUTROPENIA [None]
  - PLEURAL EFFUSION [None]
  - VOMITING [None]
  - WHITE BLOOD CELL COUNT DECREASED [None]
